FAERS Safety Report 21820709 (Version 2)
Quarter: 2023Q1

REPORT INFORMATION
  Report Type: Spontaneous
  Country: US (occurrence: US)
  Receive Date: 20230105
  Receipt Date: 20230130
  Transmission Date: 20230418
  Serious: No
  Sender: FDA-Public Use
  Company Number: US-SA-SAC20230103000795

PATIENT
  Age: 75 Year
  Sex: Male
  Weight: 113.39 kg

DRUGS (39)
  1. DUPIXENT [Suspect]
     Active Substance: DUPILUMAB
     Indication: Dermatitis atopic
     Dosage: 2 ML, QOW
     Route: 058
     Dates: start: 202001
  2. ACETAMINOPHEN [Concomitant]
     Active Substance: ACETAMINOPHEN
     Indication: Pain
     Dosage: 2 DF, Q8H
     Dates: start: 20191004
  3. AMOXICILLIN\CLAVULANATE POTASSIUM [Concomitant]
     Active Substance: AMOXICILLIN\CLAVULANATE POTASSIUM
     Dosage: 1 DF, BID
     Route: 048
     Dates: start: 20220811
  4. CHLORHEXIDINE GLUCONATE AL [Concomitant]
     Dosage: 1 DF, QD
     Dates: start: 20210721
  5. CHOLECALCIFEROL [Concomitant]
     Active Substance: CHOLECALCIFEROL
     Dosage: 1 DF, QD
     Route: 048
     Dates: start: 20210821
  6. CLOBETASOL [Concomitant]
     Active Substance: CLOBETASOL
     Dosage: 1 DF, BID
     Route: 061
     Dates: start: 20230109
  7. BETAMETHASONE\CLOTRIMAZOLE [Concomitant]
     Active Substance: BETAMETHASONE\CLOTRIMAZOLE
     Dosage: 1 DF, BID
     Route: 061
     Dates: start: 20210512
  8. DUPIXENT [Concomitant]
     Active Substance: DUPILUMAB
     Dosage: UNK
     Route: 058
     Dates: start: 20221017
  9. DUPIXENT [Concomitant]
     Active Substance: DUPILUMAB
     Dosage: 2 ML, QOW
     Route: 058
     Dates: start: 20221226
  10. ASPIRIN [Concomitant]
     Active Substance: ASPIRIN
     Dosage: 1 DF, QD
     Route: 048
     Dates: start: 20190410
  11. LEUCOVORIN CALCIUM [Concomitant]
     Active Substance: LEUCOVORIN CALCIUM
     Dosage: 1 DF, QD
     Route: 048
     Dates: start: 20221110
  12. GLIMEPIRIDE [Concomitant]
     Active Substance: GLIMEPIRIDE
     Dosage: 1 DF, QD
     Dates: start: 20220902
  13. GLUCOSAMINE SULFATE + CHONDROITIN [Concomitant]
     Dosage: 1 DF, BID
     Route: 048
     Dates: start: 20180821
  14. HYDROCHLOROTHIAZIDE [Concomitant]
     Active Substance: HYDROCHLOROTHIAZIDE
     Dosage: 1 DF, QD
     Route: 048
     Dates: start: 20220901
  15. HYDROXYCHLOROQUINE [Concomitant]
     Active Substance: HYDROXYCHLOROQUINE
     Dosage: 1 DF, QD
     Route: 048
     Dates: start: 20220901
  16. IBUPROFEN [Concomitant]
     Active Substance: IBUPROFEN
     Dosage: 1 DF, TID
     Dates: start: 20220901
  17. IRBESARTAN [Concomitant]
     Active Substance: IRBESARTAN
     Dosage: 1 DF, QD
     Dates: start: 20220909
  18. KETOCONAZOLE [Concomitant]
     Active Substance: KETOCONAZOLE
     Dosage: 1 DF, BID
     Route: 061
     Dates: start: 20221222
  19. LATANOPROST [Concomitant]
     Active Substance: LATANOPROST
     Dosage: 1 DF, QD
     Route: 047
     Dates: start: 20221206
  20. MELATONIN [Concomitant]
     Active Substance: MELATONIN
     Dosage: 1 DF, QD
     Route: 048
     Dates: start: 20180821
  21. METFORMIN [Concomitant]
     Active Substance: METFORMIN HYDROCHLORIDE
     Dosage: 2 DF, QD
     Dates: start: 20221226
  22. METHOTREXATE SODIUM [Concomitant]
     Active Substance: METHOTREXATE SODIUM
     Dosage: 10 DF, QW
     Dates: start: 20221225
  23. METHYLPREDNISOLONE [Concomitant]
     Active Substance: METHYLPREDNISOLONE
     Dosage: UNK UNK, PRN
     Dates: start: 20220818
  24. METOPROLOL SUCCINATE [Concomitant]
     Active Substance: METOPROLOL SUCCINATE
     Dosage: 1 DF, QD
     Dates: start: 20220901
  25. MIRALAX [Concomitant]
     Active Substance: POLYETHYLENE GLYCOL 3350
     Dosage: 17 G, QD
     Route: 048
     Dates: start: 20180821
  26. MUCINEX [Concomitant]
     Active Substance: GUAIFENESIN
     Dosage: 1 DF, QD
     Route: 048
     Dates: start: 20180821
  27. NITROGLYCERIN [Concomitant]
     Active Substance: NITROGLYCERIN
     Dosage: 1 DF, QD
     Route: 062
     Dates: start: 20221225
  28. NITROGLYCERIN [Concomitant]
     Active Substance: NITROGLYCERIN
     Indication: Chest pain
     Dosage: 1 DF, Q5MN
     Dates: start: 20200825
  29. NYSTATIN [Concomitant]
     Active Substance: NYSTATIN
     Dosage: 1 DF, BID
     Route: 061
     Dates: start: 20220926
  30. OMEGA-3 FATTY ACIDS [Concomitant]
     Active Substance: OMEGA-3 FATTY ACIDS
     Dosage: 3 DF, QD
     Route: 048
     Dates: start: 20180821
  31. OXYBUTYNIN CHLORIDE [Concomitant]
     Active Substance: OXYBUTYNIN CHLORIDE
     Dosage: 2 DF, QD
     Dates: start: 20220902
  32. PAROXETINE [Concomitant]
     Active Substance: PAROXETINE
     Dosage: 1 DF, QD
     Dates: start: 20221226
  33. PAXLOVID [Concomitant]
     Active Substance: NIRMATRELVIR\RITONAVIR
     Dosage: UNK UNK, PRN
     Dates: start: 20221103
  34. TOUJEO [Concomitant]
     Active Substance: INSULIN GLARGINE
     Dosage: UNK UNK, PRN
     Dates: start: 20211230
  35. RESTASIS [Concomitant]
     Active Substance: CYCLOSPORINE
     Dosage: 1 DF, BID
     Route: 047
     Dates: start: 20211228
  36. TRIAMCINOLONE ACETONIDE [Concomitant]
     Active Substance: TRIAMCINOLONE ACETONIDE
     Dosage: 2 DF, QD
     Route: 061
     Dates: start: 20230112
  37. ROSUVASTATIN [Concomitant]
     Active Substance: ROSUVASTATIN
     Dosage: 1 DF, QD
     Route: 048
     Dates: start: 20221225
  38. TERBINAFINE HYDROCHLORIDE [Concomitant]
     Active Substance: TERBINAFINE HYDROCHLORIDE
     Dosage: UNK
     Dates: start: 20221019
  39. TOUJEO MAX [Concomitant]
     Active Substance: INSULIN GLARGINE
     Dosage: 88 U, QD
     Route: 058
     Dates: start: 20221125

REACTIONS (1)
  - COVID-19 [Unknown]

NARRATIVE: CASE EVENT DATE: 20221201
